FAERS Safety Report 5401784-6 (Version None)
Quarter: 2007Q3

REPORT INFORMATION
  Report Type: 
  Country: None (occurrence: None)
  Receive Date: 20070731
  Receipt Date: 20070719
  Transmission Date: 20080115
  Serious: Yes (Hospitalization)
  Sender: FDA-Public Use
  Company Number: FR-PFIZER INC-2007060989

PATIENT
  Sex: Male

DRUGS (11)
  1. HYDROXYZINE HYDROCHLORIDE [Suspect]
     Dosage: DAILY DOSE:25MG
     Route: 048
     Dates: start: 20070413, end: 20070514
  2. LASIX [Suspect]
     Indication: RENAL FAILURE CHRONIC
     Dosage: DAILY DOSE:500MG
     Route: 048
     Dates: start: 20070413, end: 20070516
  3. HAVLANE [Suspect]
     Indication: INSOMNIA
     Dosage: TEXT:1DF/0.5DF
     Route: 048
     Dates: start: 20070413, end: 20070515
  4. HAVLANE [Suspect]
  5. PLAVIX [Concomitant]
  6. PENTOXIFYLLINE [Concomitant]
  7. ADANCOR [Concomitant]
  8. CARDENSIEL [Concomitant]
  9. INIPOMP [Concomitant]
  10. ARANESP [Concomitant]
  11. UMULINE [Concomitant]

REACTIONS (2)
  - CONFUSIONAL STATE [None]
  - SOMNOLENCE [None]
